FAERS Safety Report 10434655 (Version 2)
Quarter: 2014Q3

REPORT INFORMATION
  Report Type: Report from Study
  Country: CN (occurrence: CN)
  Receive Date: 20140906
  Receipt Date: 20140906
  Transmission Date: 20150326
  Serious: Yes (Other)
  Sender: FDA-Public Use
  Company Number: CN-ACCORD-025641

PATIENT

DRUGS (1)
  1. PACLITAXEL/PACLITAXEL LIPOSOME [Suspect]
     Active Substance: PACLITAXEL
     Indication: NON-SMALL CELL LUNG CANCER
     Dosage: LIPOSOME PACLITAXEL, AT DAY 1: 135~175 MG/M2 MIXED WITH 500ML 5% GLUCOSE FOR 3 HOUR
     Route: 041

REACTIONS (1)
  - Lung infection [Unknown]
